FAERS Safety Report 5509700-3 (Version None)
Quarter: 2007Q4

REPORT INFORMATION
  Report Type: 
  Country: None (occurrence: None)
  Receive Date: 20071108
  Receipt Date: 20071030
  Transmission Date: 20080405
  Serious: Yes (Hospitalization)
  Sender: FDA-Public Use
  Company Number: US-JNJFOC-20071100089

PATIENT
  Sex: Female
  Weight: 53.52 kg

DRUGS (1)
  1. FENTANYL TRANSDERMAL SYSTEM [Suspect]
     Indication: NEURALGIA
     Route: 062

REACTIONS (3)
  - ASTHMA [None]
  - CARDIAC DISORDER [None]
  - LUNG INFECTION [None]
